FAERS Safety Report 5485839-6 (Version None)
Quarter: 2007Q4

REPORT INFORMATION
  Report Type: 
  Country: None (occurrence: None)
  Receive Date: 20071015
  Receipt Date: 20071005
  Transmission Date: 20080405
  Serious: Yes (Other)
  Sender: FDA-Public Use
  Company Number: US-SANOFI-SYNTHELABO-A03200705898

PATIENT
  Age: 64 Year
  Sex: Male

DRUGS (3)
  1. ELOXATIN [Suspect]
     Indication: COLORECTAL CANCER
     Dosage: 150MG EVERY 2 WEEKS
     Route: 042
     Dates: start: 20071003, end: 20071003
  2. LEUCOVORIN [Concomitant]
     Dosage: UNK
     Route: 065
  3. FLUOROURACIL [Concomitant]
     Dosage: UNK
     Route: 065

REACTIONS (1)
  - RESPIRATORY DISTRESS [None]
